FAERS Safety Report 8001958-4 (Version None)
Quarter: 2011Q4

REPORT INFORMATION
  Report Type: 
  Country: None (occurrence: None)
  Receive Date: 20111219
  Receipt Date: 20111205
  Transmission Date: 20120403
  Serious: Yes (Hospitalization)
  Sender: FDA-Public Use
  Company Number: 2011MA017223

PATIENT
  Age: 30 Year
  Sex: Female
  Weight: 63 kg

DRUGS (3)
  1. BUPIVACAINE HCL [Suspect]
     Indication: ANALGESIC THERAPY
     Dosage: 22 ML OF 0.125%; INTH
     Route: 055
  2. FENTANYL [Suspect]
     Indication: ANALGESIC THERAPY
     Dosage: 15ML, 2%; INTH
     Route: 055
  3. LIDOCAINE [Suspect]
     Indication: ANALGESIC THERAPY
     Dosage: 75 MCG;X1;INTH
     Route: 055

REACTIONS (4)
  - SENSORY LOSS [None]
  - MONOPARESIS [None]
  - MATERNAL EXPOSURE DURING PREGNANCY [None]
  - CAESAREAN SECTION [None]
